FAERS Safety Report 25511629 (Version 1)
Quarter: 2025Q3

REPORT INFORMATION
  Report Type: Spontaneous
  Country: US (occurrence: US)
  Receive Date: 20250703
  Receipt Date: 20250703
  Transmission Date: 20251021
  Serious: No
  Sender: BAUSCH AND LOMB
  Company Number: US-BAUSCHBL-2025BNL011332

PATIENT
  Age: 84 Year
  Sex: Female

DRUGS (5)
  1. BLINK GEL TEARS [Suspect]
     Active Substance: POLYETHYLENE GLYCOL 400
     Indication: Dry eye
     Route: 047
     Dates: start: 2025
  2. DIETARY SUPPLEMENT [Suspect]
     Active Substance: DIETARY SUPPLEMENT
     Indication: Dry eye
     Route: 048
     Dates: start: 2025
  3. XIIDRA [Suspect]
     Active Substance: LIFITEGRAST
     Indication: Dry eye
     Route: 047
  4. ATORVASTATIN [Concomitant]
     Active Substance: ATORVASTATIN
     Indication: Product used for unknown indication
  5. BLINK  DROPS [Concomitant]
     Indication: Product used for unknown indication

REACTIONS (2)
  - Vision blurred [Unknown]
  - Pain [Unknown]

NARRATIVE: CASE EVENT DATE: 20250101
